FAERS Safety Report 24393799 (Version 1)
Quarter: 2024Q4

REPORT INFORMATION
  Report Type: Spontaneous
  Country: JP (occurrence: JP)
  Receive Date: 20241003
  Receipt Date: 20241003
  Transmission Date: 20250115
  Serious: Yes (Other)
  Sender: DAIICHI
  Company Number: JP-DSJP-DS-2024-100534-JP

PATIENT
  Age: 83 Year
  Sex: Female
  Weight: 58.8 kg

DRUGS (3)
  1. EDOXABAN TOSYLATE [Suspect]
     Active Substance: EDOXABAN TOSYLATE
     Indication: Atrial fibrillation
     Dosage: 30MG
     Route: 048
  2. TRANSAMIN [Suspect]
     Active Substance: TRANEXAMIC ACID
     Indication: Product used for unknown indication
     Dosage: 3000MG
     Route: 065
  3. HEPARIN [Suspect]
     Active Substance: HEPARIN SODIUM
     Indication: Product used for unknown indication
     Dosage: 22,000 UNITS
     Route: 065

REACTIONS (2)
  - Aortic dissection [Recovered/Resolved]
  - Bleeding time prolonged [Recovered/Resolved]
